FAERS Safety Report 6851010-6 (Version None)
Quarter: 2010Q3

REPORT INFORMATION
  Report Type: 
  Country: None (occurrence: None)
  Receive Date: 20100716
  Receipt Date: 20071126
  Transmission Date: 20110219
  Serious: No
  Sender: FDA-Public Use
  Company Number: US-PFIZER INC-2007091331

PATIENT
  Sex: Female
  Weight: 63.636 kg

DRUGS (5)
  1. CHANTIX [Suspect]
     Indication: SMOKING CESSATION THERAPY
     Route: 048
     Dates: start: 20070918, end: 20071023
  2. FIORICET [Concomitant]
     Indication: HEADACHE
  3. ELAVIL [Concomitant]
     Indication: HEADACHE
  4. LEVOXYL [Concomitant]
     Indication: THYROID DISORDER
  5. ADVAIR DISKUS 100/50 [Concomitant]
     Indication: EMPHYSEMA

REACTIONS (1)
  - NEURALGIA [None]
